FAERS Safety Report 11769401 (Version 2)
Quarter: 2015Q4

REPORT INFORMATION
  Report Type: Spontaneous
  Country: DE (occurrence: DE)
  Receive Date: 20151123
  Receipt Date: 20151215
  Transmission Date: 20160304
  Serious: Yes (Other)
  Sender: FDA-Public Use
  Company Number: DE-DSJP-DSE-2015-136299

PATIENT

DRUGS (3)
  1. VOCADO 20 MG/ 5 MG [Suspect]
     Active Substance: AMLODIPINE BESYLATE\OLMESARTAN MEDOXOMIL
     Indication: HYPERTENSION
     Dosage: 20/5 MG, QD
     Route: 048
     Dates: start: 2014, end: 20151124
  2. BELOC                              /00376903/ [Suspect]
     Active Substance: METOPROLOL TARTRATE
     Dosage: 95 MG, BID
     Dates: start: 20151124
  3. BELOC                              /00376903/ [Suspect]
     Active Substance: METOPROLOL TARTRATE
     Indication: PRODUCT USED FOR UNKNOWN INDICATION
     Dates: start: 1995, end: 20151109

REACTIONS (1)
  - Heart rate increased [Recovered/Resolved]

NARRATIVE: CASE EVENT DATE: 20151108
